FAERS Safety Report 7544852-5 (Version None)
Quarter: 2011Q2

REPORT INFORMATION
  Report Type: 
  Country: None (occurrence: None)
  Receive Date: 20110614
  Receipt Date: 20090606
  Transmission Date: 20111010
  Serious: Yes (Other)
  Sender: FDA-Public Use
  Company Number: US-BAYER-200922404NA

PATIENT
  Age: 69 Year
  Sex: Female
  Weight: 84 kg

DRUGS (14)
  1. SPIRONOLACTONE [Concomitant]
     Dosage: 25MG
     Route: 048
     Dates: start: 20040122
  2. CARDIZEM [Concomitant]
     Dosage: 120MG DAILY
     Route: 048
     Dates: start: 20040122
  3. COUMADIN [Concomitant]
     Dosage: 2.5MG-NO PILL SUNDAYS
     Route: 048
     Dates: start: 20040411
  4. CAPTOPRIL [Concomitant]
     Dosage: UNK
     Route: 048
     Dates: start: 19930101
  5. COREG [Concomitant]
     Dosage: 0.25MG ? TAB BID
     Route: 048
     Dates: start: 20040324
  6. TRASYLOL [Suspect]
     Dosage: , LOADING DOSE OF 200ML, THEN  50CC PER HOUR DRIP
     Route: 042
     Dates: start: 20040521, end: 20040521
  7. INSULIN [Concomitant]
     Dosage: UNK
     Route: 058
     Dates: start: 20040427
  8. ACETYLSALICYLIC ACID SRT [Concomitant]
     Route: 048
  9. TRASYLOL [Suspect]
     Indication: UNEVALUABLE EVENT
     Dosage: INITIAL (TEST) DOSE OF 1 ML
     Route: 042
     Dates: start: 20040521, end: 20040521
  10. AMIODARONE HCL [Concomitant]
     Dosage: 450MG/250CC
     Route: 042
     Dates: start: 20040521, end: 20040528
  11. PAPAVERINE [Concomitant]
     Dosage: 38MG 1CC
     Route: 042
     Dates: start: 20040521
  12. ACCUPRIL [Concomitant]
     Dosage: 40MG-1/2 DAILY
     Route: 048
     Dates: start: 20020725
  13. DIGOXIN [Concomitant]
     Dosage: 0.125MG 2MWF 1 OTHER DAYS
     Route: 048
     Dates: start: 20010805
  14. HEPARIN [Concomitant]
     Dosage: 48,000 UNITS
     Route: 042

REACTIONS (10)
  - RENAL INJURY [None]
  - STRESS [None]
  - ANXIETY [None]
  - RENAL FAILURE [None]
  - FEAR [None]
  - RENAL IMPAIRMENT [None]
  - INJURY [None]
  - UNEVALUABLE EVENT [None]
  - ANHEDONIA [None]
  - PAIN [None]
